FAERS Safety Report 15541194 (Version 1)
Quarter: 2018Q4

REPORT INFORMATION
  Report Type: Spontaneous
  Country: IT (occurrence: IT)
  Receive Date: 20181023
  Receipt Date: 20181023
  Transmission Date: 20190205
  Serious: Yes (Disabling)
  Sender: FDA-Public Use
  Company Number: PHHY2018IT134605

PATIENT
  Age: 77 Year
  Sex: Female
  Weight: 49 kg

DRUGS (1)
  1. COSENTYX [Suspect]
     Active Substance: SECUKINUMAB
     Indication: ANKYLOSING SPONDYLITIS
     Dosage: 300 MG, UNK
     Route: 058

REACTIONS (2)
  - Arthritis [Unknown]
  - Drug effect decreased [Unknown]

NARRATIVE: CASE EVENT DATE: 20181004
